FAERS Safety Report 7948412-3 (Version None)
Quarter: 2011Q4

REPORT INFORMATION
  Report Type: 
  Country: None (occurrence: None)
  Receive Date: 20111130
  Receipt Date: 20111122
  Transmission Date: 20120403
  Serious: Yes (Death)
  Sender: FDA-Public Use
  Company Number: US-CELGENEUS-163-21880-11113324

PATIENT
  Sex: Male

DRUGS (7)
  1. REVLIMID [Suspect]
     Indication: MULTIPLE MYELOMA
     Dosage: 10 MILLIGRAM
     Route: 048
     Dates: start: 20080511, end: 20110101
  2. ACYCLOVIR [Concomitant]
     Dosage: 800 MILLIGRAM
     Route: 048
  3. ZANTAC [Concomitant]
     Dosage: 150 MILLIGRAM
     Route: 048
  4. ASPIRIN [Concomitant]
     Dosage: 81 MILLIGRAM
     Route: 048
  5. DECADRON [Concomitant]
     Dosage: .5 MILLIGRAM
     Route: 048
  6. BACTRIM [Concomitant]
     Dosage: 400-80MG
     Route: 048
  7. LIPITOR [Concomitant]
     Dosage: 10 MILLIGRAM
     Route: 048

REACTIONS (1)
  - DEATH [None]
